FAERS Safety Report 22110833 (Version 2)
Quarter: 2023Q2

REPORT INFORMATION
  Report Type: Spontaneous
  Country: US (occurrence: US)
  Receive Date: 20230317
  Receipt Date: 20230410
  Transmission Date: 20230722
  Serious: Yes (Other)
  Sender: FDA-Public Use
  Company Number: US-RADIUS HEALTH, INC.-2023US000083

PATIENT
  Age: 67 Year
  Sex: Female

DRUGS (3)
  1. TYMLOS [Suspect]
     Active Substance: ABALOPARATIDE
     Indication: Senile osteoporosis
     Dosage: 80 MICROGRAM, QD
     Route: 058
     Dates: start: 20221215
  2. TYMLOS [Suspect]
     Active Substance: ABALOPARATIDE
     Dosage: 80 MICROGRAM, QD
     Route: 058
     Dates: start: 20221212
  3. TYMLOS [Suspect]
     Active Substance: ABALOPARATIDE
     Dosage: 60 MCG DAILY 6 CLICKS QD
     Route: 058

REACTIONS (9)
  - Ataxia [Not Recovered/Not Resolved]
  - Blood pressure fluctuation [Unknown]
  - Headache [Unknown]
  - Nausea [Not Recovered/Not Resolved]
  - Abdominal pain upper [Unknown]
  - Insomnia [Unknown]
  - Dizziness [Not Recovered/Not Resolved]
  - Intentional product misuse [Unknown]
  - Product storage error [Unknown]

NARRATIVE: CASE EVENT DATE: 20230120
